FAERS Safety Report 21646786 (Version 1)
Quarter: 2022Q4

REPORT INFORMATION
  Report Type: Spontaneous
  Country: SE (occurrence: SE)
  Receive Date: 20221127
  Receipt Date: 20221127
  Transmission Date: 20230113
  Serious: Yes (Death)
  Sender: FDA-Public Use
  Company Number: None

PATIENT
  Age: 8 Week

DRUGS (1)
  1. PREDNISOLONE [Suspect]
     Active Substance: PREDNISOLONE
     Indication: Vestibular neuronitis
     Dosage: 6 TABLETS FOR 5 DAYS THEN 3 TABLETS FOR 5 DAYS, STRENGTH 10 MG, DURATION 9 DAYS
     Dates: start: 20220919, end: 20220928

REACTIONS (3)
  - Foetal death [Fatal]
  - Foetal growth restriction [Fatal]
  - Maternal exposure during pregnancy [Fatal]

NARRATIVE: CASE EVENT DATE: 20220901
